APPROVED DRUG PRODUCT: NORINYL
Active Ingredient: MESTRANOL; NORETHINDRONE
Strength: 0.1MG;2MG
Dosage Form/Route: TABLET;ORAL-20
Application: N013625 | Product #004
Applicant: ACTAVIS LABORATORIES UT INC
Approved: Approved Prior to Jan 1, 1982 | RLD: No | RS: No | Type: DISCN